FAERS Safety Report 4628736-8 (Version None)
Quarter: 2005Q3

REPORT INFORMATION
  Report Type: 
  Country: None (occurrence: None)
  Receive Date: 20050406
  Receipt Date: 20050323
  Transmission Date: 20060218
  Serious: Yes (Hospitalization)
  Sender: FDA-Public Use
  Company Number: 03-000513

PATIENT
  Sex: Female

DRUGS (1)
  1. FEMHRT [Suspect]
     Indication: NIGHT SWEATS
     Dosage: 5/1000 UG QD, ORAL
     Route: 048
     Dates: start: 20031001

REACTIONS (7)
  - CONDITION AGGRAVATED [None]
  - DIFFICULTY IN WALKING [None]
  - FIBROMYALGIA [None]
  - HYPOAESTHESIA [None]
  - MUSCLE SPASMS [None]
  - OEDEMA PERIPHERAL [None]
  - RASH MACULAR [None]
